FAERS Safety Report 9170897 (Version 1)
Quarter: 2013Q1

REPORT INFORMATION
  Report Type: Spontaneous
  Country: CA (occurrence: None)
  Receive Date: 20130312
  Receipt Date: 20130312
  Transmission Date: 20140127
  Serious: Yes (Other)
  Sender: FDA-Public Use
  Company Number: CA-1196938

PATIENT
  Sex: 0

DRUGS (1)
  1. FLUORESCITE [Suspect]
     Route: 040
     Dates: start: 20130114, end: 20130114

REACTIONS (1)
  - Anaphylactic reaction [None]
